FAERS Safety Report 8821043 (Version 1)
Quarter: 2012Q4

REPORT INFORMATION
  Report Type: 
  Country: US (occurrence: US)
  Receive Date: 20121002
  Receipt Date: 20121002
  Transmission Date: 20130627
  Serious: No
  Sender: FDA-Public Use
  Company Number: US-ASTRAZENECA-2012SE73376

PATIENT
  Age: 52 Year
  Sex: Female

DRUGS (6)
  1. PULMICORT RESPULES [Suspect]
     Route: 055
  2. PULMICORT RESPULES [Suspect]
     Route: 055
  3. NEXIUM [Suspect]
     Route: 048
  4. PRILOSEC OTC [Suspect]
     Route: 048
  5. ADVAIR [Concomitant]
  6. SPRIVA [Concomitant]

REACTIONS (3)
  - Respiratory disorder [Unknown]
  - Hypersensitivity [Unknown]
  - Off label use [Unknown]
